FAERS Safety Report 20779285 (Version 2)
Quarter: 2022Q2

REPORT INFORMATION
  Report Type: Report from Study
  Country: FR (occurrence: FR)
  Receive Date: 20220503
  Receipt Date: 20220613
  Transmission Date: 20220721
  Serious: Yes (Other)
  Sender: FDA-Public Use
  Company Number: FR-AMGEN-FRACT2022074817

PATIENT
  Age: 61 Year
  Sex: Female
  Weight: 100 kg

DRUGS (6)
  1. CARFILZOMIB [Suspect]
     Active Substance: CARFILZOMIB
     Indication: Plasma cell myeloma
     Dosage: 44 MILLIGRAM, PER CHEMO REGIM,D1,D8,D15
     Route: 042
     Dates: start: 20220131
  2. CARFILZOMIB [Suspect]
     Active Substance: CARFILZOMIB
     Dosage: 123 MILLIGRAM, PER CHEMO REGIM
     Route: 042
  3. CARFILZOMIB [Suspect]
     Active Substance: CARFILZOMIB
     Dosage: 115 MILLIGRAM, PER CHEMO REGIM
     Route: 042
     Dates: end: 20220330
  4. ISATUXIMAB [Suspect]
     Active Substance: ISATUXIMAB
     Indication: Plasma cell myeloma
     Dosage: 1000 MILLIGRAM, PER CHEMO REGIM
     Route: 042
     Dates: start: 20220131, end: 20220330
  5. LENALIDOMIDE [Suspect]
     Active Substance: LENALIDOMIDE
     Indication: Plasma cell myeloma
     Dosage: 25 MILLIGRAM, PER CHEMO REGIM, DAILY
     Route: 048
     Dates: start: 20220131, end: 20220405
  6. DEXAMETHASONE [Suspect]
     Active Substance: DEXAMETHASONE
     Indication: Plasma cell myeloma
     Dosage: 40 MILLIGRAM, PER CHEMO REGIM, WEEKLY
     Route: 048
     Dates: start: 20220131, end: 20220330

REACTIONS (1)
  - Dermatitis acneiform [Not Recovered/Not Resolved]

NARRATIVE: CASE EVENT DATE: 20220330
